FAERS Safety Report 16366558 (Version 3)
Quarter: 2019Q3

REPORT INFORMATION
  Report Type: Report from Study
  Country: GB (occurrence: GB)
  Receive Date: 20190529
  Receipt Date: 20190909
  Transmission Date: 20191004
  Serious: Yes (Other)
  Sender: FDA-Public Use
  Company Number: GB-ROCHE-2317093

PATIENT
  Sex: Female

DRUGS (2)
  1. ROACTEMRA [Suspect]
     Active Substance: TOCILIZUMAB
     Indication: RHEUMATOID ARTHRITIS
     Route: 058
     Dates: start: 20170616
  2. LANSOPRAZOLE. [Concomitant]
     Active Substance: LANSOPRAZOLE

REACTIONS (8)
  - Dizziness [Unknown]
  - Cholecystitis infective [Unknown]
  - Malaise [Unknown]
  - Pancreatitis [Unknown]
  - Pyrexia [Unknown]
  - Eating disorder [Unknown]
  - Arthritis [Unknown]
  - Cholelithiasis [Unknown]
